FAERS Safety Report 8907181 (Version 3)
Quarter: 2013Q1

REPORT INFORMATION
  Report Type: Spontaneous
  Country: US (occurrence: US)
  Receive Date: 20121114
  Receipt Date: 20130327
  Transmission Date: 20140127
  Serious: Yes (Other)
  Sender: FDA-Public Use
  Company Number: US-GILEAD-2012-0064547

PATIENT
  Sex: Female

DRUGS (2)
  1. LETAIRIS [Suspect]
     Indication: PULMONARY ARTERIAL HYPERTENSION
     Dosage: 5 MG, QD
     Route: 048
     Dates: start: 20101001
  2. LETAIRIS [Suspect]
     Indication: PULMONARY ARTERIAL HYPERTENSION

REACTIONS (8)
  - Pulmonary fibrosis [Unknown]
  - Sarcoidosis [Unknown]
  - Cough [Unknown]
  - Walking distance test abnormal [Unknown]
  - Pulmonary congestion [Unknown]
  - Nasopharyngitis [Unknown]
  - Sinusitis [Unknown]
  - Dyspnoea [Unknown]
